FAERS Safety Report 9915113 (Version 1)
Quarter: 2014Q1

REPORT INFORMATION
  Report Type: Report from Study
  Country: ES (occurrence: ES)
  Receive Date: 20140220
  Receipt Date: 20140220
  Transmission Date: 20141002
  Serious: Yes (Other)
  Sender: FDA-Public Use
  Company Number: ES-ASTRAZENECA-2014SE11081

PATIENT
  Age: 68 Year
  Sex: Female

DRUGS (17)
  1. TICAGRELOR [Suspect]
     Indication: ACUTE CORONARY SYNDROME
     Route: 048
     Dates: start: 20130906
  2. ASPIRIN [Suspect]
     Indication: ACUTE CORONARY SYNDROME
     Route: 048
     Dates: start: 20130906
  3. ATORVASTATINA [Concomitant]
  4. BISOPROLOL [Concomitant]
     Dosage: 5 MG 0.50/24 H
  5. ENALAPRIL [Concomitant]
  6. HIDROFEROL [Concomitant]
     Dosage: 1/SEM
  7. AMLODIPIN [Concomitant]
  8. PARACETAMOL [Concomitant]
  9. HIDRALAZINE [Concomitant]
  10. PANTOPRAZOL [Concomitant]
  11. DIAZEPAM [Concomitant]
  12. VERAPAMIL [Concomitant]
  13. BIVALIRUDINE [Concomitant]
  14. METROCLOPRAMIDE [Concomitant]
  15. DEXCLORFENIRAMINE [Concomitant]
  16. MORPHINE [Concomitant]
  17. NITROPUSSIDE [Concomitant]

REACTIONS (1)
  - Catheter site haemorrhage [Recovered/Resolved]
